FAERS Safety Report 6383284-2 (Version None)
Quarter: 2009Q4

REPORT INFORMATION
  Report Type: 
  Country: None (occurrence: None)
  Receive Date: 20091001
  Receipt Date: 20071109
  Transmission Date: 20100525
  Serious: Yes (Other)
  Sender: FDA-Public Use
  Company Number: US-ASTRAZENECA-2006UW02373

PATIENT
  Age: 41 Year
  Sex: Male
  Weight: 102.1 kg

DRUGS (10)
  1. SEROQUEL [Suspect]
     Indication: SCHIZOPHRENIA
     Route: 048
     Dates: start: 20020101, end: 20030101
  2. SEROQUEL [Suspect]
     Indication: ANXIETY
     Route: 048
     Dates: start: 20020101, end: 20030101
  3. SEROQUEL [Suspect]
     Indication: SLEEP DISORDER
     Route: 048
     Dates: start: 20020101, end: 20030101
  4. SEROQUEL [Suspect]
     Route: 048
     Dates: start: 20071104
  5. SEROQUEL [Suspect]
     Route: 048
     Dates: start: 20071104
  6. SEROQUEL [Suspect]
     Route: 048
     Dates: start: 20071104
  7. RISPERDAL [Concomitant]
  8. NAPROSYN [Concomitant]
     Route: 048
     Dates: start: 20071104
  9. EFFEXOR [Concomitant]
     Route: 048
     Dates: start: 20071104
  10. ABILIFY [Concomitant]
     Dates: start: 20071104

REACTIONS (3)
  - DIABETES MELLITUS [None]
  - DIABETIC NEUROPATHY [None]
  - TYPE 2 DIABETES MELLITUS [None]
